FAERS Safety Report 15933453 (Version 1)
Quarter: 2019Q1

REPORT INFORMATION
  Report Type: Spontaneous
  Country: FR (occurrence: FR)
  Receive Date: 20190207
  Receipt Date: 20190207
  Transmission Date: 20190417
  Serious: Yes (Death, Hospitalization)
  Sender: FDA-Public Use
  Company Number: FR-BIOGEN-2012BI024017

PATIENT
  Age: 48 Year
  Sex: Male

DRUGS (2)
  1. ELSEP [Suspect]
     Active Substance: MITOXANTRONE HYDROCHLORIDE
     Indication: MULTIPLE SCLEROSIS
     Route: 042
     Dates: start: 20040701, end: 20041207
  2. AVONEX [Suspect]
     Active Substance: INTERFERON BETA-1A
     Indication: MULTIPLE SCLEROSIS
     Route: 042
     Dates: start: 2004

REACTIONS (5)
  - Deep vein thrombosis [Recovered/Resolved]
  - Liver disorder [Unknown]
  - Cerebrovascular accident [Fatal]
  - Pulmonary embolism [Recovered/Resolved]
  - Pancreatic injury [Unknown]

NARRATIVE: CASE EVENT DATE: 20120315
